FAERS Safety Report 10547536 (Version 2)
Quarter: 2014Q4

REPORT INFORMATION
  Report Type: Spontaneous
  Country: US (occurrence: US)
  Receive Date: 20141028
  Receipt Date: 20141028
  Transmission Date: 20150529
  Serious: No
  Sender: FDA-Public Use
  Company Number: US-DRREDDYS-USA/USA/14/0037666

PATIENT
  Sex: Female

DRUGS (1)
  1. NATEGLINIDE TABLETS [Suspect]
     Active Substance: NATEGLINIDE
     Indication: DIABETES MELLITUS
     Route: 048

REACTIONS (2)
  - No adverse event [Unknown]
  - Product taste abnormal [Unknown]
